FAERS Safety Report 16389405 (Version 1)
Quarter: 2019Q3

REPORT INFORMATION
  Report Type: Spontaneous
  Country: US (occurrence: US)
  Receive Date: 20190603
  Receipt Date: 20190603
  Transmission Date: 20191004
  Serious: Yes (Other)
  Sender: FDA-Public Use
  Company Number: None

PATIENT
  Age: 58 Year
  Sex: Female
  Weight: 77 kg

DRUGS (10)
  1. DEXAMETHASONE. [Concomitant]
     Active Substance: DEXAMETHASONE
  2. OXALIPLTAIN [Concomitant]
     Dates: start: 20190506
  3. LEUCOVORIN. [Concomitant]
     Active Substance: LEUCOVORIN
     Dates: start: 20190506
  4. APIXABAN [Concomitant]
     Active Substance: APIXABAN
  5. OLANZAPINE. [Concomitant]
     Active Substance: OLANZAPINE
  6. OMEPRAZOLE. [Concomitant]
     Active Substance: OMEPRAZOLE
  7. FLUOROURACIL. [Suspect]
     Active Substance: FLUOROURACIL
     Indication: GASTROINTESTINAL ADENOCARCINOMA
     Dosage: ?          OTHER FREQUENCY:ONCE;?
     Route: 042
     Dates: start: 20190506
  8. APREPITANT. [Concomitant]
     Active Substance: APREPITANT
  9. LACOSAMIDE. [Concomitant]
     Active Substance: LACOSAMIDE
  10. LIOTHYRONINE [Concomitant]
     Active Substance: LIOTHYRONINE

REACTIONS (3)
  - Neuropathy peripheral [None]
  - Neutrophil count decreased [None]
  - Headache [None]

NARRATIVE: CASE EVENT DATE: 20190521
